FAERS Safety Report 19380199 (Version 1)
Quarter: 2021Q2

REPORT INFORMATION
  Report Type: Spontaneous
  Country: US (occurrence: US)
  Receive Date: 20210604
  Receipt Date: 20210604
  Transmission Date: 20210717
  Serious: No
  Sender: FDA-Public Use
  Company Number: None

PATIENT
  Age: 89 Year
  Sex: Female
  Weight: 53.98 kg

DRUGS (4)
  1. ACTEMRA 80MG/4ML VIAL, 80 MG/4 ML [Concomitant]
     Indication: OSTEOARTHRITIS
  2. ACTEMRA [Suspect]
     Active Substance: TOCILIZUMAB
     Indication: POLYMYALGIA RHEUMATICA
     Route: 042
     Dates: start: 201905
  3. ACTEMRA [Suspect]
     Active Substance: TOCILIZUMAB
     Indication: POLYMYALGIA RHEUMATICA
     Route: 042
     Dates: start: 201809
  4. ACTEMRA [Suspect]
     Active Substance: TOCILIZUMAB
     Indication: OSTEOARTHRITIS
     Route: 042
     Dates: start: 201809

REACTIONS (2)
  - Anaemia [None]
  - Skin disorder [None]
